FAERS Safety Report 8050392-X (Version None)
Quarter: 2012Q1

REPORT INFORMATION
  Report Type: 
  Country: None (occurrence: None)
  Receive Date: 20120117
  Receipt Date: 20120103
  Transmission Date: 20120608
  Serious: Yes (Death, Hospitalization, Other)
  Sender: FDA-Public Use
  Company Number: FR-ACTELION-A-CH2011-53687

PATIENT
  Sex: Male

DRUGS (1)
  1. ZAVESCA [Suspect]
     Indication: NIEMANN-PICK DISEASE
     Dosage: 200 MG, BID
     Route: 048
     Dates: start: 20100201, end: 20110621

REACTIONS (7)
  - RESPIRATORY DISTRESS [None]
  - RESPIRATORY TRACT INFECTION [None]
  - ABDOMINAL PAIN [None]
  - PYREXIA [None]
  - CONVULSION [None]
  - SUBILEUS [None]
  - HYPOXIA [None]
